FAERS Safety Report 7821579-3 (Version None)
Quarter: 2011Q4

REPORT INFORMATION
  Report Type: 
  Country: None (occurrence: None)
  Receive Date: 20111018
  Receipt Date: 20110418
  Transmission Date: 20120403
  Serious: No
  Sender: FDA-Public Use
  Company Number: US-ASTRAZENECA-2011SE22075

PATIENT
  Age: 47 Year
  Sex: Female
  Weight: 81.2 kg

DRUGS (12)
  1. SYMBICORT [Suspect]
     Route: 055
  2. SPIRIVA [Suspect]
  3. PULMICORT [Suspect]
     Route: 055
  4. ALBUTEROL [Suspect]
  5. SINGULAIR [Suspect]
  6. AMBIEN CR [Concomitant]
  7. DOXYCYCLINE [Concomitant]
  8. XOPENEX HFA [Suspect]
     Indication: ASTHMA
     Route: 055
  9. TRIAMTERENE AND HYDROCHLOROTHIAZIDE [Concomitant]
  10. AMLODIPINE [Concomitant]
  11. HYDROXYZINE [Concomitant]
  12. ANTI- FUNGAL [Concomitant]

REACTIONS (2)
  - MALAISE [None]
  - FOOD ALLERGY [None]
